FAERS Safety Report 15491136 (Version 3)
Quarter: 2018Q4

REPORT INFORMATION
  Report Type: Spontaneous
  Country: BR (occurrence: BR)
  Receive Date: 20181012
  Receipt Date: 20181221
  Transmission Date: 20190205
  Serious: Yes (Other)
  Sender: FDA-Public Use
  Company Number: BR-AMGEN-BRASP2018141718

PATIENT
  Age: 80 Year
  Sex: Female

DRUGS (1)
  1. ENBREL [Suspect]
     Active Substance: ETANERCEPT
     Indication: PRODUCT USED FOR UNKNOWN INDICATION
     Dosage: UNK
     Route: 065
     Dates: start: 201704, end: 201809

REACTIONS (6)
  - Intervertebral disc disorder [Unknown]
  - Spinal fracture [Unknown]
  - Bone disorder [Unknown]
  - Inflammation [Unknown]
  - Pain [Unknown]
  - Mass [Unknown]
